FAERS Safety Report 14599205 (Version 1)
Quarter: 2018Q1

REPORT INFORMATION
  Report Type: Spontaneous
  Country: CA (occurrence: CA)
  Receive Date: 20180305
  Receipt Date: 20180305
  Transmission Date: 20180509
  Serious: Yes (Other)
  Sender: FDA-Public Use
  Company Number: CA-ABBVIE-18S-028-2275734-00

PATIENT
  Age: 66 Year
  Sex: Female

DRUGS (1)
  1. SYNTHROID [Suspect]
     Active Substance: LEVOTHYROXINE SODIUM
     Indication: HYPOTHYROIDISM
     Dosage: 150 ?G, QD
     Route: 048

REACTIONS (8)
  - Blood thyroid stimulating hormone increased [Recovering/Resolving]
  - Mental impairment [Recovering/Resolving]
  - Feeling cold [Recovering/Resolving]
  - Fatigue [Recovering/Resolving]
  - Fluid retention [Recovering/Resolving]
  - Sleep disorder [Recovering/Resolving]
  - Product quality issue [Recovering/Resolving]
  - Arthralgia [Recovering/Resolving]
